FAERS Safety Report 20334118 (Version 1)
Quarter: 2022Q1

REPORT INFORMATION
  Report Type: Other
  Country: US (occurrence: US)
  Receive Date: 20220113
  Receipt Date: 20220113
  Transmission Date: 20220423
  Serious: No
  Sender: FDA-Public Use
  Company Number: US-Covis Pharma GmbH-2021COV24357

PATIENT
  Age: 34 Year
  Sex: Female

DRUGS (1)
  1. MAKENA [Suspect]
     Active Substance: HYDROXYPROGESTERONE CAPROATE
     Indication: Premature delivery
     Route: 058

REACTIONS (2)
  - Exposure to SARS-CoV-2 [Unknown]
  - Product dose omission issue [Unknown]
